FAERS Safety Report 5608318-1 (Version None)
Quarter: 2008Q1

REPORT INFORMATION
  Report Type: 
  Country: None (occurrence: None)
  Receive Date: 20080130
  Receipt Date: 20080124
  Transmission Date: 20080703
  Serious: Yes (Hospitalization)
  Sender: FDA-Public Use
  Company Number: JP-BOEHRINGER INGELHEIM GMBH, GERMANY-2007-BP-23530NB

PATIENT
  Sex: Female
  Weight: 31 kg

DRUGS (5)
  1. MICARDIS [Suspect]
     Indication: HYPERTENSION
     Route: 048
     Dates: start: 20060724
  2. LASIX [Suspect]
     Indication: PROPHYLAXIS
     Route: 048
     Dates: start: 20070116
  3. NORVASC [Concomitant]
     Indication: HYPERTENSION
     Route: 048
     Dates: start: 20051208, end: 20070104
  4. ASPIRIN [Concomitant]
     Route: 048
     Dates: start: 20060317
  5. DILTIAZEM HCL [Concomitant]
     Route: 048
     Dates: start: 20070104

REACTIONS (4)
  - ADVERSE EVENT [None]
  - ATRIAL FLUTTER [None]
  - CARDIAC FAILURE [None]
  - HYPERURICAEMIA [None]
